FAERS Safety Report 7195231-4 (Version None)
Quarter: 2010Q4

REPORT INFORMATION
  Report Type: 
  Country: None (occurrence: None)
  Receive Date: 20101223
  Receipt Date: 20100928
  Transmission Date: 20110411
  Serious: No
  Sender: FDA-Public Use
  Company Number: US-AMGEN-KDL441778

PATIENT

DRUGS (2)
  1. ENBREL [Suspect]
     Indication: PRODUCT USED FOR UNKNOWN INDICATION
     Dosage: 25 MG, 2 TIMES/WK
     Route: 058
     Dates: start: 20100922
  2. METHOTREXATE [Concomitant]
     Dosage: UNK UNK, UNK
     Dates: start: 20100922

REACTIONS (2)
  - DECREASED APPETITE [None]
  - NASOPHARYNGITIS [None]
